FAERS Safety Report 12920620 (Version 3)
Quarter: 2024Q4

REPORT INFORMATION
  Report Type: Spontaneous
  Country: JP (occurrence: JP)
  Receive Date: 20161108
  Receipt Date: 20241021
  Transmission Date: 20250115
  Serious: Yes (Life-Threatening, Hospitalization, Other)
  Sender: PFIZER
  Company Number: JP-MLMSERVICE-20161027-0473136-1

PATIENT
  Age: 22 Year
  Sex: Female

DRUGS (1)
  1. LEVOFLOXACIN [Suspect]
     Active Substance: LEVOFLOXACIN
     Indication: Viral infection
     Dosage: UNK
     Route: 048

REACTIONS (3)
  - Purpura fulminans [Recovered/Resolved]
  - Cutaneous vasculitis [Recovered/Resolved]
  - Haematochezia [Recovered/Resolved]
